FAERS Safety Report 6220865-0 (Version None)
Quarter: 2009Q2

REPORT INFORMATION
  Report Type: 
  Country: None (occurrence: None)
  Receive Date: 20090610
  Receipt Date: 20090529
  Transmission Date: 20091009
  Serious: Yes (Other)
  Sender: FDA-Public Use
  Company Number: PHHY2009FR21873

PATIENT
  Age: 65 Year
  Sex: Male

DRUGS (4)
  1. STALEVO 100 [Suspect]
     Indication: PARKINSON'S DISEASE
     Dosage: 1200/900/225 MG DAILY
     Dates: start: 20020615
  2. MANTADIX [Suspect]
     Indication: PARKINSON'S DISEASE
     Dosage: 100 MG, BID
     Dates: start: 20020615
  3. REQUIP [Suspect]
     Indication: PARKINSON'S DISEASE
     Dosage: UNK
     Dates: start: 20020615
  4. LEVODOPA [Concomitant]
     Dosage: UNK
     Dates: start: 19950101

REACTIONS (6)
  - LIBIDO INCREASED [None]
  - NEUROSURGERY [None]
  - PATHOLOGICAL GAMBLING [None]
  - PERSONALITY CHANGE [None]
  - POLYSUBSTANCE DEPENDENCE [None]
  - PSYCHOMOTOR HYPERACTIVITY [None]
